FAERS Safety Report 11330240 (Version 1)
Quarter: 2015Q3

REPORT INFORMATION
  Report Type: Spontaneous
  Country: US (occurrence: US)
  Receive Date: 20150803
  Receipt Date: 20150803
  Transmission Date: 20151125
  Serious: Yes (Hospitalization)
  Sender: FDA-Public Use
  Company Number: US-AUROBINDO-AUR-APL-2015-06516

PATIENT
  Age: 24 Year
  Sex: Female

DRUGS (4)
  1. CARBAMAZEPINE. [Concomitant]
     Active Substance: CARBAMAZEPINE
     Indication: SEIZURE
     Route: 065
  2. LEVETIRACETAM 250MG [Suspect]
     Active Substance: LEVETIRACETAM
     Dosage: 500 MG, TWO TIMES A DAY
     Route: 065
  3. LEVETIRACETAM 250MG [Suspect]
     Active Substance: LEVETIRACETAM
     Indication: SEIZURE
     Dosage: 250 MG, TWO TIMES A DAY
     Route: 065
  4. LEVETIRACETAM 250MG [Suspect]
     Active Substance: LEVETIRACETAM
     Dosage: 1000 MG, TWO TIMES A DAY
     Route: 065

REACTIONS (10)
  - Haemodynamic instability [Unknown]
  - Pneumonia [Unknown]
  - Dyspnoea [Unknown]
  - Electrocardiogram QT prolonged [Unknown]
  - Torsade de pointes [Unknown]
  - Epilepsy [Recovered/Resolved]
  - Seizure [Recovered/Resolved]
  - Diabetes insipidus [Unknown]
  - Ventricular tachycardia [Recovered/Resolved]
  - Mental status changes [Unknown]
